FAERS Safety Report 6195059-8 (Version None)
Quarter: 2009Q2

REPORT INFORMATION
  Report Type: 
  Country: None (occurrence: None)
  Receive Date: 20090519
  Receipt Date: 20090507
  Transmission Date: 20091009
  Serious: Yes (Hospitalization)
  Sender: FDA-Public Use
  Company Number: US-ALEXION-A200900379

PATIENT
  Sex: Male

DRUGS (12)
  1. SOLIRIS [Suspect]
     Indication: PAROXYSMAL NOCTURNAL HAEMOGLOBINURIA
     Dosage: 600 MG, QWK
     Route: 042
     Dates: start: 20080128, end: 20080218
  2. SOLIRIS [Suspect]
     Dosage: 900 MG, Q2WK
     Route: 042
     Dates: start: 20080225, end: 20080728
  3. SOLIRIS [Suspect]
     Dosage: 900 MG, Q2WK
     Route: 042
     Dates: start: 20080919
  4. ASPIRIN [Concomitant]
     Dosage: UNK
     Route: 048
  5. ARIXTRA [Concomitant]
     Dosage: UNK
  6. COUMADIN [Concomitant]
     Dosage: UNK
     Route: 048
  7. PREDNISONE [Concomitant]
     Dosage: UNK
     Route: 048
  8. TOPROL-XL [Concomitant]
     Dosage: UNK
     Route: 048
  9. FOLIC ACID [Concomitant]
     Dosage: UNK
     Route: 048
  10. NEXIAM                             /01479301/ [Concomitant]
     Dosage: UNK
     Route: 048
  11. HYDREA [Concomitant]
     Dosage: UNK
     Route: 048
  12. EXJADE [Concomitant]
     Dosage: UNK
     Route: 048

REACTIONS (1)
  - CHOLELITHIASIS [None]
